FAERS Safety Report 4937556-6 (Version None)
Quarter: 2006Q1

REPORT INFORMATION
  Report Type: 
  Country: None (occurrence: None)
  Receive Date: 20060308
  Receipt Date: 20060308
  Transmission Date: 20060701
  Serious: Yes (Other)
  Sender: FDA-Public Use
  Company Number: None

PATIENT
  Sex: Female

DRUGS (3)
  1. FLUOXETINE [Suspect]
     Indication: MAJOR DEPRESSION
     Dosage: 40MG ONE BY PO QD
     Route: 048
     Dates: start: 20040101, end: 20050101
  2. FLUOXETINE [Suspect]
     Indication: PSYCHOTIC DISORDER
     Dosage: 40MG ONE BY PO QD
     Route: 048
     Dates: start: 20040101, end: 20050101
  3. SEROQUEL [Concomitant]

REACTIONS (3)
  - CONDITION AGGRAVATED [None]
  - FEELING ABNORMAL [None]
  - PARANOIA [None]
